FAERS Safety Report 17040669 (Version 3)
Quarter: 2020Q3

REPORT INFORMATION
  Report Type: Report from Study
  Country: US (occurrence: US)
  Receive Date: 20191117
  Receipt Date: 20200713
  Transmission Date: 20201102
  Serious: No
  Sender: FDA-Public Use
  Company Number: NVSC2019US038263

PATIENT
  Sex: Female

DRUGS (4)
  1. MAYZENT [Suspect]
     Active Substance: SIPONIMOD
     Dosage: 4 DF
     Route: 065
     Dates: start: 20191104
  2. MAYZENT [Suspect]
     Active Substance: SIPONIMOD
     Dosage: 2 MG (2 TABLETS), QD
     Route: 065
     Dates: start: 20191103
  3. MAYZENT [Suspect]
     Active Substance: SIPONIMOD
     Indication: MULTIPLE SCLEROSIS
     Dosage: 2 MG (2 TABLETS), QD
     Route: 048
     Dates: start: 20191101
  4. MAYZENT [Suspect]
     Active Substance: SIPONIMOD
     Dosage: 0.25 MG
     Route: 065
     Dates: start: 20191103

REACTIONS (3)
  - Drug titration error [Unknown]
  - Rash erythematous [Unknown]
  - Rash [Unknown]
